FAERS Safety Report 18332330 (Version 1)
Quarter: 2020Q3

REPORT INFORMATION
  Report Type: Spontaneous
  Country: AU (occurrence: AU)
  Receive Date: 20200930
  Receipt Date: 20200930
  Transmission Date: 20201103
  Serious: Yes (Hospitalization, Other)
  Sender: FDA-Public Use
  Company Number: AU-PURDUE-USA-2020-0168405

PATIENT
  Sex: Female

DRUGS (17)
  1. DROPERIDOL. [Suspect]
     Active Substance: DROPERIDOL
     Indication: BREAKTHROUGH PAIN
     Route: 064
  2. AMITRIPTYLINE [Suspect]
     Active Substance: AMITRIPTYLINE
     Indication: BREAKTHROUGH PAIN
     Dosage: 50 MG, NOCTE
     Route: 064
  3. PARACETAMOL [Suspect]
     Active Substance: ACETAMINOPHEN
     Indication: BREAKTHROUGH PAIN
     Route: 064
  4. SALBUTAMOL [Suspect]
     Active Substance: ALBUTEROL
     Indication: ASTHMA
     Route: 064
  5. FLUTICASONE. [Suspect]
     Active Substance: FLUTICASONE
     Indication: ASTHMA
     Route: 064
  6. MORPHINE [Suspect]
     Active Substance: MORPHINE
     Dosage: UNK
     Route: 064
  7. MS CONTIN [Suspect]
     Active Substance: MORPHINE SULFATE
     Dosage: 200 MG, DAILY
     Route: 064
  8. KETAMINE [Suspect]
     Active Substance: KETAMINE
     Indication: BREAKTHROUGH PAIN
     Dosage: 0.1 MG/KG, Q1H
     Route: 064
  9. BETAMETHASONE. [Suspect]
     Active Substance: BETAMETHASONE
     Indication: ASTHMA
     Route: 064
  10. RANITIDINE. [Suspect]
     Active Substance: RANITIDINE
     Indication: GASTROOESOPHAGEAL REFLUX DISEASE
     Route: 064
  11. MS CONTIN [Suspect]
     Active Substance: MORPHINE SULFATE
     Indication: PAIN MANAGEMENT
     Dosage: 360 MG, UNK
     Route: 064
  12. AMITRIPTYLINE [Suspect]
     Active Substance: AMITRIPTYLINE
     Dosage: 10 MG, NOCTE
     Route: 064
  13. CODEINE W/PARACETAMOL [Suspect]
     Active Substance: ACETAMINOPHEN\CODEINE PHOSPHATE
     Indication: BREAKTHROUGH PAIN
     Route: 064
  14. PREDNISONE. [Suspect]
     Active Substance: PREDNISONE
     Indication: ASTHMA
     Route: 064
  15. MS CONTIN [Suspect]
     Active Substance: MORPHINE SULFATE
     Dosage: 60 MG, BID
     Route: 064
  16. MORPHINE [Suspect]
     Active Substance: MORPHINE
     Indication: BREAKTHROUGH PAIN
     Route: 064
  17. METOCLOPRAMIDE. [Suspect]
     Active Substance: METOCLOPRAMIDE
     Indication: GASTROOESOPHAGEAL REFLUX DISEASE
     Route: 064

REACTIONS (3)
  - Low birth weight baby [Unknown]
  - Foetal exposure during pregnancy [Unknown]
  - Premature baby [Unknown]
